FAERS Safety Report 5525330-1 (Version None)
Quarter: 2007Q4

REPORT INFORMATION
  Report Type: 
  Country: None (occurrence: None)
  Receive Date: 20071120
  Receipt Date: 20071120
  Transmission Date: 20080405
  Serious: Yes (Hospitalization)
  Sender: FDA-Public Use
  Company Number: None

PATIENT
  Sex: Female
  Weight: 79.5 kg

DRUGS (2)
  1. CYCLOPHOSPHAMIDE [Suspect]
     Dosage: 1130 MG
  2. DOXORUBICIN HYDROCHLORIDE [Suspect]
     Dosage: 113 MG

REACTIONS (1)
  - FEBRILE NEUTROPENIA [None]
